FAERS Safety Report 5149404-2 (Version None)
Quarter: 2006Q4

REPORT INFORMATION
  Report Type: 
  Country: None (occurrence: None)
  Receive Date: 20061113
  Receipt Date: 20051227
  Transmission Date: 20070319
  Serious: No
  Sender: FDA-Public Use
  Company Number: 430507

PATIENT
  Age: 62 Year
  Sex: Male

DRUGS (4)
  1. COREG [Suspect]
     Dosage: 25MG TWICE PER DAY
     Route: 048
     Dates: start: 19970101
  2. DIOVAN [Concomitant]
  3. COUMADIN [Concomitant]
  4. ASPIRIN [Concomitant]

REACTIONS (3)
  - ASTHENIA [None]
  - BLOOD PRESSURE DECREASED [None]
  - DIZZINESS [None]
